FAERS Safety Report 9425427 (Version 1)
Quarter: 2013Q3

REPORT INFORMATION
  Report Type: Spontaneous
  Country: US (occurrence: US)
  Receive Date: 20130729
  Receipt Date: 20130729
  Transmission Date: 20140515
  Serious: Yes (Hospitalization)
  Sender: FDA-Public Use
  Company Number: US-BAYER-2013-088855

PATIENT
  Age: 33 Year
  Sex: Female

DRUGS (9)
  1. YASMIN [Suspect]
  2. TENORMIN [Concomitant]
  3. LEXAPRO [Concomitant]
  4. AMBIEN [Concomitant]
  5. GLUCOPHAGE [Concomitant]
  6. ATARAX [Concomitant]
  7. ZYRTEC [Concomitant]
  8. BIOTIN [Concomitant]
  9. MULTIVITAMIN [Concomitant]

REACTIONS (1)
  - Pulmonary embolism [Recovering/Resolving]
